FAERS Safety Report 9549443 (Version 2)
Quarter: 2013Q3

REPORT INFORMATION
  Report Type: Spontaneous
  Country: US (occurrence: US)
  Receive Date: 20130924
  Receipt Date: 20130924
  Transmission Date: 20140515
  Serious: Yes (Other)
  Sender: FDA-Public Use
  Company Number: US-ROCHE-1271832

PATIENT
  Sex: Female
  Weight: 107.14 kg

DRUGS (8)
  1. ERIVEDGE [Suspect]
     Indication: SKIN CANCER
     Dosage: TAKE 150 MG BY MOUTH DAILY
     Route: 048
     Dates: start: 201212
  2. INDERAL [Concomitant]
     Indication: HYPERTENSION
  3. LISINOPRIL [Concomitant]
     Indication: HYPERTENSION
  4. HCTZ [Concomitant]
     Indication: HYPERTENSION
  5. TYLENOL #3 (UNITED STATES) [Concomitant]
     Indication: PAIN
  6. SIMVASTATIN [Concomitant]
     Indication: BLOOD CHOLESTEROL INCREASED
  7. XANAX [Concomitant]
  8. FLEXERIL (UNITED STATES) [Concomitant]
     Indication: MUSCLE RELAXANT THERAPY

REACTIONS (10)
  - Muscle spasms [Not Recovered/Not Resolved]
  - Musculoskeletal pain [Not Recovered/Not Resolved]
  - Ageusia [Not Recovered/Not Resolved]
  - Alopecia [Not Recovered/Not Resolved]
  - Fatigue [Not Recovered/Not Resolved]
  - Weight decreased [Not Recovered/Not Resolved]
  - Arthralgia [Not Recovered/Not Resolved]
  - Body height decreased [Not Recovered/Not Resolved]
  - Tremor [Not Recovered/Not Resolved]
  - Transient ischaemic attack [Unknown]
